FAERS Safety Report 5819682-2 (Version None)
Quarter: 2008Q3

REPORT INFORMATION
  Report Type: 
  Country: None (occurrence: None)
  Receive Date: 20080718
  Receipt Date: 20080708
  Transmission Date: 20090109
  Serious: Yes (Hospitalization)
  Sender: FDA-Public Use
  Company Number: DSA_32105_2008

PATIENT
  Sex: Female

DRUGS (5)
  1. LORAZEPAM [Suspect]
     Dosage: (ORAL)
     Route: 048
     Dates: start: 20080707, end: 20080707
  2. ALCOHOL (ALCOHOL - ETHANOL) [Suspect]
     Dosage: (ORAL)
     Route: 048
     Dates: start: 20080707, end: 20080707
  3. FLUOXETINE [Suspect]
     Dosage: (ORAL)
     Route: 048
     Dates: start: 20080707, end: 20080707
  4. NALTREXONE (NALTREXONE) [Suspect]
     Dosage: (ORAL)
     Route: 048
     Dates: start: 20080707, end: 20080707
  5. TRUXAL /00012102/ (TRUXAL - CHLORPROTHIXENE HYDROCHLORIDE) (NOT SPECIF [Suspect]
     Dosage: (ORAL)
     Route: 048
     Dates: start: 20080707, end: 20080707

REACTIONS (5)
  - ACIDOSIS [None]
  - ALCOHOL USE [None]
  - INTENTIONAL OVERDOSE [None]
  - SOMNOLENCE [None]
  - SUICIDE ATTEMPT [None]
